FAERS Safety Report 6684828-3 (Version None)
Quarter: 2010Q2

REPORT INFORMATION
  Report Type: 
  Country: None (occurrence: None)
  Receive Date: 20100416
  Receipt Date: 20100413
  Transmission Date: 20101027
  Serious: Yes (Hospitalization)
  Sender: FDA-Public Use
  Company Number: US-ROCHE-655440

PATIENT
  Sex: Male
  Weight: 232 kg

DRUGS (13)
  1. KLONOPIN [Suspect]
     Indication: DRUG USE FOR UNKNOWN INDICATION
     Route: 065
     Dates: start: 20090701
  2. PEGINTERFERON ALFA-2A [Suspect]
     Dosage: TEMPORARILY INTERRUPTED.
     Route: 058
     Dates: start: 20090714, end: 20090901
  3. PEGINTERFERON ALFA-2A [Suspect]
     Dosage: RESTARTED
     Route: 058
     Dates: start: 20090915
  4. RIBAVIRIN [Suspect]
     Dosage: TEMPORARILY INTERRUPTED
     Route: 048
     Dates: start: 20090714, end: 20090831
  5. RIBAVIRIN [Suspect]
     Dosage: RESTARTED
     Route: 048
     Dates: start: 20090911
  6. ULTRAM [Suspect]
     Indication: DRUG USE FOR UNKNOWN INDICATION
     Route: 065
  7. XANAX [Suspect]
     Indication: DRUG USE FOR UNKNOWN INDICATION
     Route: 065
     Dates: start: 20090601, end: 20090901
  8. CELEXA [Suspect]
     Indication: DRUG USE FOR UNKNOWN INDICATION
     Route: 065
     Dates: start: 20090701
  9. FLEXERIL [Suspect]
     Indication: DRUG USE FOR UNKNOWN INDICATION
     Route: 065
  10. TRAZODONE [Suspect]
     Indication: DRUG USE FOR UNKNOWN INDICATION
     Route: 065
     Dates: start: 20090701
  11. FLURBIPROFEN [Suspect]
     Indication: DRUG USE FOR UNKNOWN INDICATION
     Route: 065
     Dates: start: 20090601, end: 20090829
  12. LYRICA [Suspect]
     Indication: DRUG USE FOR UNKNOWN INDICATION
     Route: 065
     Dates: start: 20090601, end: 20090830
  13. OXYCODONE [Suspect]
     Indication: DRUG USE FOR UNKNOWN INDICATION
     Route: 065
     Dates: start: 20090601

REACTIONS (2)
  - PNEUMONIA [None]
  - RHABDOMYOLYSIS [None]
